FAERS Safety Report 13602402 (Version 3)
Quarter: 2017Q3

REPORT INFORMATION
  Report Type: Spontaneous
  Country: CO (occurrence: CO)
  Receive Date: 20170601
  Receipt Date: 20170911
  Transmission Date: 20171127
  Serious: Yes (Other)
  Sender: FDA-Public Use
  Company Number: CO-PFIZER INC-2017239715

PATIENT
  Age: 46 Year
  Sex: Female

DRUGS (2)
  1. METHOTREXATE SODIUM. [Suspect]
     Active Substance: METHOTREXATE SODIUM
     Dosage: UNK
     Dates: start: 2015, end: 201612
  2. METHOTREXATE SODIUM. [Suspect]
     Active Substance: METHOTREXATE SODIUM
     Indication: RHEUMATOID ARTHRITIS
     Dosage: 6 DF, WEEKLY, EVERY SUNDAY
     Route: 048
     Dates: start: 201603, end: 201610

REACTIONS (8)
  - Dehydration [Unknown]
  - Polyuria [Unknown]
  - Lacrimation increased [Unknown]
  - Decreased appetite [Unknown]
  - Vomiting [Unknown]
  - Hepatitis B [Unknown]
  - Nocturia [Unknown]
  - Hepatitis [Unknown]

NARRATIVE: CASE EVENT DATE: 2016
